FAERS Safety Report 9255204 (Version 1)
Quarter: 2013Q2

REPORT INFORMATION
  Report Type: Spontaneous
  Country: GB (occurrence: GB)
  Receive Date: 20130425
  Receipt Date: 20130425
  Transmission Date: 20140414
  Serious: Yes (Hospitalization)
  Sender: FDA-Public Use
  Company Number: GB-JNJFOC-20120712188

PATIENT
  Sex: Female

DRUGS (3)
  1. REMICADE [Suspect]
     Indication: CROHN^S DISEASE
     Route: 042
  2. REMICADE [Suspect]
     Indication: CROHN^S DISEASE
     Route: 042
     Dates: start: 20110309, end: 20121009
  3. AZATHIOPRINE [Suspect]
     Indication: CROHN^S DISEASE
     Route: 048
     Dates: start: 20100902

REACTIONS (2)
  - Hospitalisation [Unknown]
  - Exposure during pregnancy [Recovered/Resolved]
